FAERS Safety Report 15793905 (Version 1)
Quarter: 2019Q1

REPORT INFORMATION
  Report Type: Spontaneous
  Country: US (occurrence: US)
  Receive Date: 20190107
  Receipt Date: 20190107
  Transmission Date: 20190417
  Serious: No
  Sender: FDA-Public Use
  Company Number: US-SA-2019SA001984

PATIENT
  Age: 63 Year
  Sex: Male

DRUGS (2)
  1. TOUJEO [Suspect]
     Active Substance: INSULIN GLARGINE
     Indication: TYPE 2 DIABETES MELLITUS
     Dosage: 30 U, HS
     Route: 065
     Dates: start: 20181120
  2. NOVOLOG [Suspect]
     Active Substance: INSULIN ASPART
     Dosage: 9 U, PRN
     Route: 065

REACTIONS (1)
  - Extra dose administered [Unknown]
